FAERS Safety Report 9722121 (Version 4)
Quarter: 2014Q1

REPORT INFORMATION
  Report Type: Spontaneous
  Country: US (occurrence: US)
  Receive Date: 20131202
  Receipt Date: 20140226
  Transmission Date: 20141002
  Serious: Yes (Hospitalization, Other)
  Sender: FDA-Public Use
  Company Number: US-BIOGENIDEC-2013BI113147

PATIENT
  Age: 49 Year
  Sex: Female

DRUGS (12)
  1. TECFIDERA [Suspect]
     Indication: MULTIPLE SCLEROSIS
     Route: 048
     Dates: start: 20130917, end: 20130923
  2. TECFIDERA [Suspect]
     Indication: MULTIPLE SCLEROSIS
     Route: 048
     Dates: start: 20130924, end: 20131202
  3. BACLOFEN [Concomitant]
  4. CALTRATE [Concomitant]
  5. CELEXA [Concomitant]
  6. COZAAR [Concomitant]
  7. CYCLOBENZAPRINE [Concomitant]
  8. NEURONTIN [Concomitant]
  9. NEXIUM [Concomitant]
  10. NORCO [Concomitant]
  11. VISTARIL [Concomitant]
  12. ZOFRAN [Concomitant]

REACTIONS (5)
  - Vomiting [Unknown]
  - Nausea [Unknown]
  - Metastatic malignant melanoma [Unknown]
  - Gastroenteritis bacterial [Recovered/Resolved]
  - Abdominal pain upper [Unknown]
